FAERS Safety Report 8793005 (Version 2)
Quarter: 2013Q2

REPORT INFORMATION
  Report Type: Report from Study
  Country: JP (occurrence: JP)
  Receive Date: 20120918
  Receipt Date: 20130613
  Transmission Date: 20140414
  Serious: Yes (Other)
  Sender: FDA-Public Use
  Company Number: JP-VERTEX PHARMACEUTICAL INC.-2012-021223

PATIENT
  Age: 58 Year
  Sex: Female

DRUGS (9)
  1. VX-950 (TELAPREVIR) [Suspect]
     Indication: CHRONIC HEPATITIS C
     Dosage: 2250 MG, QD
     Route: 048
     Dates: start: 20120604, end: 20120730
  2. REBETOL [Suspect]
     Indication: CHRONIC HEPATITIS C
     Dosage: 1000 MG, QD
     Route: 048
     Dates: start: 20120604, end: 20120708
  3. REBETOL [Suspect]
     Dosage: 1000 MG EVERY 2 DAYS
     Route: 048
     Dates: start: 20120709, end: 20120721
  4. REBETOL [Suspect]
     Dosage: 800 MG EVERY 2 DAYS
     Route: 048
     Dates: start: 20120710, end: 20120722
  5. REBETOL [Suspect]
     Dosage: 800 MG, QD
     Route: 048
     Dates: start: 20120723
  6. PEGINTRON [Suspect]
     Indication: CHRONIC HEPATITIS C
     Dosage: 120 ?G, QW
     Route: 058
     Dates: start: 20120604
  7. RIKKUNSHITO [Concomitant]
     Dosage: 7.5 G, QD
     Route: 048
     Dates: start: 20120604
  8. LOXOPROFEN [Concomitant]
     Dosage: 180 MG, QD
     Route: 048
     Dates: start: 20120717, end: 20120723
  9. TALION [Concomitant]
     Dosage: 20 MG, QD
     Route: 048
     Dates: start: 20120604

REACTIONS (1)
  - Retinopathy [Recovered/Resolved]
